FAERS Safety Report 4633717-4 (Version None)
Quarter: 2005Q2

REPORT INFORMATION
  Report Type: 
  Country: None (occurrence: None)
  Receive Date: 20050413
  Receipt Date: 20050408
  Transmission Date: 20051028
  Serious: Yes (Hospitalization, Other)
  Sender: FDA-Public Use
  Company Number: US-RB-1460-2005

PATIENT
  Sex: Male

DRUGS (4)
  1. SUBOXONE [Suspect]
     Indication: DRUG DEPENDENCE
     Route: 060
  2. VALPROATE SODIUM [Concomitant]
     Indication: DRUG USE FOR UNKNOWN INDICATION
     Dosage: CLINICAL LIASION, LISA CLARK REPORTS PATIENT TAKES THIS MEDICATION QID.
     Route: 048
  3. MEDICINALPRODUCT NOT SPECIFIED BY SENDER [Concomitant]
     Indication: DRUG USE FOR UNKNOWN INDICATION
     Dosage: THIS WAS CHANGED TO SEROQUIL ON 6-APR-2005 INSTEAD OF ZYPREA.
     Route: 048
  4. QUETIAPINE FUMARATE [Concomitant]
     Indication: DRUG USE FOR UNKNOWN INDICATION
     Dosage: CHANGED TO THIS ON 6-APR-2005
     Route: 048
     Dates: start: 20050406

REACTIONS (3)
  - ANXIETY [None]
  - INSOMNIA [None]
  - MANIA [None]
